FAERS Safety Report 12280294 (Version 1)
Quarter: 2016Q2

REPORT INFORMATION
  Report Type: Spontaneous
  Country: US (occurrence: US)
  Receive Date: 20160419
  Receipt Date: 20160419
  Transmission Date: 20160815
  Serious: Yes (Other)
  Sender: FDA-Public Use
  Company Number: US-BEH-2016060706

PATIENT
  Sex: Male
  Weight: 89 kg

DRUGS (40)
  1. DIPHENHYDRAMINE. [Concomitant]
     Active Substance: DIPHENHYDRAMINE
  2. VITAMIN C [Concomitant]
     Active Substance: ASCORBIC ACID
  3. NORVASC [Concomitant]
     Active Substance: AMLODIPINE BESYLATE
  4. MIRALAX [Concomitant]
     Active Substance: POLYETHYLENE GLYCOL 3350
  5. VITAMINS [Concomitant]
     Active Substance: VITAMINS
  6. AMOXICILLIN. [Concomitant]
     Active Substance: AMOXICILLIN
  7. NAPROXEN. [Concomitant]
     Active Substance: NAPROXEN
  8. SAW PALMETTO [Concomitant]
     Active Substance: SAW PALMETTO
  9. LEVOTHYROXINE. [Concomitant]
     Active Substance: LEVOTHYROXINE
  10. TYLENOL EXTRA STRENGTH [Concomitant]
     Active Substance: ACETAMINOPHEN
  11. GABAPENTIN. [Concomitant]
     Active Substance: GABAPENTIN
  12. LISINOPRIL. [Concomitant]
     Active Substance: LISINOPRIL
  13. AZITHROMYCIN ANHYDROUS. [Concomitant]
     Active Substance: AZITHROMYCIN ANHYDROUS
  14. OPTIVE EYE DROPS [Concomitant]
  15. ADVAIR HFA [Concomitant]
     Active Substance: FLUTICASONE PROPIONATE\SALMETEROL XINAFOATE
  16. RANITIDINE. [Concomitant]
     Active Substance: RANITIDINE
  17. LMX [Concomitant]
     Active Substance: LIDOCAINE
  18. CLONIDINE. [Concomitant]
     Active Substance: CLONIDINE
  19. EPIPEN [Concomitant]
     Active Substance: EPINEPHRINE
  20. CIPRODEX [Concomitant]
     Active Substance: CIPROFLOXACIN HYDROCHLORIDE\DEXAMETHASONE
  21. PREDNISONE. [Concomitant]
     Active Substance: PREDNISONE
  22. DIGOXIN. [Concomitant]
     Active Substance: DIGOXIN
  23. LANTUS [Concomitant]
     Active Substance: INSULIN GLARGINE
  24. ALLOPURINOL. [Concomitant]
     Active Substance: ALLOPURINOL
  25. CALCIUM [Concomitant]
     Active Substance: CALCIUM
  26. DUONEB [Concomitant]
     Active Substance: ALBUTEROL SULFATE\IPRATROPIUM BROMIDE
  27. OCUFLOX [Concomitant]
     Active Substance: OFLOXACIN
  28. GLIPIZIDE. [Concomitant]
     Active Substance: GLIPIZIDE
  29. THEOPHYLLINE [Concomitant]
     Active Substance: THEOPHYLLINE ANHYDROUS
  30. MAGNESIUM OXIDE. [Concomitant]
     Active Substance: MAGNESIUM OXIDE
  31. ASPIRIN ADULT [Concomitant]
  32. LIDOCAINE PATCH [Concomitant]
     Active Substance: LIDOCAINE
  33. HIZENTRA [Suspect]
     Active Substance: HUMAN IMMUNOGLOBULIN G
     Indication: IMMUNODEFICIENCY COMMON VARIABLE
     Route: 058
  34. ACETAMINOPHEN. [Concomitant]
     Active Substance: ACETAMINOPHEN
  35. SYNTHROID [Concomitant]
     Active Substance: LEVOTHYROXINE SODIUM
  36. FLUTICASONE PROPIONATE. [Concomitant]
     Active Substance: FLUTICASONE PROPIONATE
  37. REQUIP [Concomitant]
     Active Substance: ROPINIROLE HYDROCHLORIDE
  38. TORSEMIDE. [Concomitant]
     Active Substance: TORSEMIDE
  39. CLARITIN [Concomitant]
     Active Substance: LORATADINE
  40. NITROGLYCERIN. [Concomitant]
     Active Substance: NITROGLYCERIN

REACTIONS (1)
  - Wound infection [Unknown]
